APPROVED DRUG PRODUCT: PERPHENAZINE AND AMITRIPTYLINE HYDROCHLORIDE
Active Ingredient: AMITRIPTYLINE HYDROCHLORIDE; PERPHENAZINE
Strength: 25MG;4MG
Dosage Form/Route: TABLET;ORAL
Application: A071079 | Product #001
Applicant: SUN PHARMACEUTICAL INDUSTRIES INC
Approved: Nov 12, 1986 | RLD: No | RS: No | Type: DISCN